FAERS Safety Report 9280160 (Version 1)
Quarter: 2013Q2

REPORT INFORMATION
  Report Type: Spontaneous
  Country: US (occurrence: None)
  Receive Date: 20130507
  Receipt Date: 20130507
  Transmission Date: 20140414
  Serious: Yes (Hospitalization, Disabling, Other)
  Sender: FDA-Public Use
  Company Number: None

PATIENT
  Sex: Male
  Weight: 113.4 kg

DRUGS (3)
  1. ABILIFY [Suspect]
     Indication: VASCULITIS
     Dosage: 1 TAB
     Route: 048
  2. ABILIFY [Suspect]
     Indication: DERMATITIS
     Dosage: 1 TAB
     Route: 048
  3. ABILIFY [Suspect]
     Indication: OEDEMA
     Dosage: 1 TAB
     Route: 048

REACTIONS (7)
  - Local swelling [None]
  - Joint swelling [None]
  - Muscle disorder [None]
  - Nervous system disorder [None]
  - Gait disturbance [None]
  - Impaired driving ability [None]
  - Unevaluable event [None]
